FAERS Safety Report 25112426 (Version 2)
Quarter: 2025Q1

REPORT INFORMATION
  Report Type: Spontaneous
  Country: US (occurrence: US)
  Receive Date: 20250324
  Receipt Date: 20250326
  Transmission Date: 20250409
  Serious: Yes (Other)
  Sender: UCB
  Company Number: US-UCBSA-2024059238

PATIENT
  Age: 38 Year
  Sex: Male
  Weight: 74.84 kg

DRUGS (6)
  1. BRIVIACT [Suspect]
     Active Substance: BRIVARACETAM
     Indication: Seizure
     Dates: start: 202410
  2. BRIVIACT [Suspect]
     Active Substance: BRIVARACETAM
     Indication: Seizure
     Dosage: 25 MILLIGRAM, 2X/DAY (BID)
     Dates: start: 20241103
  3. TAURINE [Concomitant]
     Active Substance: TAURINE
     Indication: Product used for unknown indication
  4. DIETARY SUPPLEMENT [Concomitant]
     Active Substance: DIETARY SUPPLEMENT
     Indication: Product used for unknown indication
  5. TRIZOMAL GLUTATHIONE [Concomitant]
     Indication: Product used for unknown indication
  6. FISH OIL\OMEGA-3 FATTY ACIDS [Concomitant]
     Active Substance: FISH OIL\OMEGA-3 FATTY ACIDS
     Indication: Product used for unknown indication

REACTIONS (11)
  - Seizure [Unknown]
  - Aggression [Unknown]
  - Somnolence [Recovering/Resolving]
  - Fatigue [Unknown]
  - Hunger [Unknown]
  - Feeling abnormal [Unknown]
  - Constipation [Unknown]
  - Head injury [Unknown]
  - Wrong technique in product usage process [Unknown]
  - Incorrect dose administered [Unknown]
  - Product use issue [Unknown]

NARRATIVE: CASE EVENT DATE: 20240101
